FAERS Safety Report 6649996-8 (Version None)
Quarter: 2010Q1

REPORT INFORMATION
  Report Type: 
  Country: None (occurrence: None)
  Receive Date: 20100324
  Receipt Date: 20100324
  Transmission Date: 20100710
  Serious: Yes (Other)
  Sender: FDA-Public Use
  Company Number: None

PATIENT
  Age: 70 Year
  Sex: Female
  Weight: 77.1115 kg

DRUGS (1)
  1. ERGOCALCIFEROL [Suspect]
     Indication: VITAMIN D DEFICIENCY
     Dosage: 1 FOR 8 WEEKS PER WEEK ORAL : 1 FOR 12 MONTHS PER MONTH DIDN'T TAKE
     Route: 048
     Dates: start: 20091205, end: 20100123

REACTIONS (2)
  - BONE DISORDER [None]
  - BONE PAIN [None]
